FAERS Safety Report 5491643-5 (Version None)
Quarter: 2007Q4

REPORT INFORMATION
  Report Type: 
  Country: None (occurrence: None)
  Receive Date: 20071022
  Receipt Date: 20071015
  Transmission Date: 20080405
  Serious: Yes (Death)
  Sender: FDA-Public Use
  Company Number: JP-NOVOPROD-268555

PATIENT

DRUGS (8)
  1. NOVOSEVEN [Suspect]
     Indication: HAEMORRHAGE
     Dosage: 4.8 MG. 53 VIALS DURING A PERIOD OF 10 DAYS.
     Route: 042
     Dates: start: 20070919, end: 20070928
  2. NOVOSEVEN [Suspect]
     Route: 042
     Dates: start: 20070919
  3. NOVOSEVEN [Suspect]
     Route: 042
     Dates: start: 20070919
  4. NOVOSEVEN [Suspect]
     Route: 042
     Dates: start: 20070920
  5. FRANDOL [Concomitant]
     Dosage: 40 MG, UNK
     Dates: start: 20070720, end: 20071015
  6. LANSOPRAZOLE [Concomitant]
     Indication: ULCER
     Dosage: 15 MG, UNK
     Route: 048
     Dates: start: 20070720, end: 20071015
  7. PRIMPERAN                          /00041901/ [Concomitant]
     Indication: ANTIEMETIC SUPPORTIVE CARE
     Dosage: 15 MG, UNK
     Route: 048
     Dates: start: 20070712, end: 20071015
  8. PREDNISOLONE [Concomitant]
     Indication: ACQUIRED HAEMOPHILIA
     Dosage: 45 MG, UNK
     Route: 048
     Dates: start: 20070921, end: 20071015

REACTIONS (1)
  - SHOCK HAEMORRHAGIC [None]
